FAERS Safety Report 6090613-6 (Version None)
Quarter: 2009Q1

REPORT INFORMATION
  Report Type: 
  Country: None (occurrence: None)
  Receive Date: 20090224
  Receipt Date: 20090114
  Transmission Date: 20090719
  Serious: No
  Sender: FDA-Public Use
  Company Number: US-ABBOTT-09P-163-0498141-00

PATIENT
  Sex: Female

DRUGS (9)
  1. SIMCOR [Suspect]
     Indication: BLOOD TRIGLYCERIDES INCREASED
     Dosage: 500/20 MG
     Route: 048
     Dates: start: 20081201
  2. PLAVIX [Concomitant]
     Indication: DRUG USE FOR UNKNOWN INDICATION
  3. PREVACID [Concomitant]
     Indication: DRUG USE FOR UNKNOWN INDICATION
  4. VERAPAMIL [Concomitant]
     Indication: DRUG USE FOR UNKNOWN INDICATION
  5. MECLIZINE [Concomitant]
     Indication: DRUG USE FOR UNKNOWN INDICATION
  6. LEVOTHYROXINE SODIUM [Concomitant]
     Indication: DRUG USE FOR UNKNOWN INDICATION
  7. ARICEPT [Concomitant]
     Indication: DRUG USE FOR UNKNOWN INDICATION
  8. LOVAZA [Concomitant]
     Indication: DRUG USE FOR UNKNOWN INDICATION
  9. VESICAR [Concomitant]
     Indication: DRUG USE FOR UNKNOWN INDICATION

REACTIONS (2)
  - MIDDLE INSOMNIA [None]
  - NAUSEA [None]
